FAERS Safety Report 4875071-9 (Version None)
Quarter: 2006Q1

REPORT INFORMATION
  Report Type: 
  Country: None (occurrence: None)
  Receive Date: 20060104
  Receipt Date: 20051221
  Transmission Date: 20060701
  Serious: Yes (Hospitalization)
  Sender: FDA-Public Use
  Company Number: 2005P1000637

PATIENT
  Age: 49 Year
  Sex: Female

DRUGS (2)
  1. RETEPLASE (RETEPLASE) [Suspect]
     Indication: ACUTE MYOCARDIAL INFARCTION
     Dosage: IV
     Route: 042
  2. ABCIXIMAB(ABCIXIMAB) [Suspect]
     Dosage: IV
     Route: 042

REACTIONS (2)
  - CARDIAC FAILURE [None]
  - DYSPNOEA [None]
